FAERS Safety Report 6343786-1 (Version None)
Quarter: 2009Q3

REPORT INFORMATION
  Report Type: 
  Country: None (occurrence: None)
  Receive Date: 20090908
  Receipt Date: 20090901
  Transmission Date: 20100115
  Serious: Yes (Hospitalization, Other)
  Sender: FDA-Public Use
  Company Number: B0591041A

PATIENT
  Age: 17 Year
  Sex: Female

DRUGS (4)
  1. PAXIL [Suspect]
     Indication: DRUG USE FOR UNKNOWN INDICATION
     Dosage: 10MG SINGLE DOSE
     Route: 048
     Dates: start: 20090830
  2. PAINKILLER [Suspect]
     Indication: DRUG USE FOR UNKNOWN INDICATION
     Dosage: 12TAB PER DAY
     Route: 048
     Dates: start: 20090830
  3. LEXOTAN [Suspect]
     Indication: DRUG USE FOR UNKNOWN INDICATION
     Dosage: 4TAB PER DAY
     Route: 048
     Dates: start: 20090830
  4. LOXONIN [Suspect]
     Indication: DRUG USE FOR UNKNOWN INDICATION
     Route: 048
     Dates: start: 20090830

REACTIONS (4)
  - BALANCE DISORDER [None]
  - CONVULSION [None]
  - MULTIPLE DRUG OVERDOSE INTENTIONAL [None]
  - SUICIDE ATTEMPT [None]
